FAERS Safety Report 7450874-5 (Version None)
Quarter: 2011Q2

REPORT INFORMATION
  Report Type: 
  Country: None (occurrence: None)
  Receive Date: 20110502
  Receipt Date: 20110425
  Transmission Date: 20111010
  Serious: Yes (Hospitalization, Other)
  Sender: FDA-Public Use
  Company Number: PT-PFIZER INC-2011088707

PATIENT
  Age: 29 Year
  Sex: Female

DRUGS (2)
  1. MISOPROSTOL [Suspect]
     Indication: OFF LABEL USE
     Dosage: 1 MG, UNK
     Route: 048
  2. MISOPROSTOL [Suspect]
     Indication: ABORTION INDUCED
     Dosage: 7 MG, UNK
     Route: 067

REACTIONS (6)
  - METABOLIC ACIDOSIS [None]
  - RENAL FAILURE ACUTE [None]
  - RHABDOMYOLYSIS [None]
  - OVERDOSE [None]
  - HEPATIC ENZYME INCREASED [None]
  - DISSEMINATED INTRAVASCULAR COAGULATION [None]
